FAERS Safety Report 5801071-8 (Version None)
Quarter: 2008Q3

REPORT INFORMATION
  Report Type: 
  Country: None (occurrence: None)
  Receive Date: 20080704
  Receipt Date: 20080627
  Transmission Date: 20090109
  Serious: Yes (Hospitalization)
  Sender: FDA-Public Use
  Company Number: US-ELI_LILLY_AND_COMPANY-US200806006289

PATIENT
  Sex: Male
  Weight: 107.94 kg

DRUGS (6)
  1. BYETTA [Suspect]
     Indication: TYPE 2 DIABETES MELLITUS
     Dosage: 5 UG, 2/D
     Route: 058
     Dates: start: 20080301, end: 20080401
  2. BYETTA [Suspect]
     Dosage: 10 UG, 2/D
     Route: 058
     Dates: start: 20080401
  3. FORTAMET [Concomitant]
     Indication: TYPE 2 DIABETES MELLITUS
     Dosage: 1000 MG, 2/D
     Route: 048
  4. GLIMEPIRIDE [Concomitant]
     Indication: TYPE 2 DIABETES MELLITUS
     Dosage: 4 MG, DAILY (1/D)
     Route: 048
     Dates: end: 20080626
  5. GLIMEPIRIDE [Concomitant]
     Dosage: 2 MG, DAILY (1/D)
     Route: 048
     Dates: start: 20080627
  6. ALTACE [Concomitant]
     Indication: BLOOD PRESSURE
     Dosage: 5 MG, DAILY (1/D)
     Route: 048

REACTIONS (11)
  - BLOOD GLUCOSE DECREASED [None]
  - BLOOD GLUCOSE INCREASED [None]
  - DISORIENTATION [None]
  - HYPERHIDROSIS [None]
  - INJECTION SITE IRRITATION [None]
  - OEDEMA PERIPHERAL [None]
  - POSTOPERATIVE WOUND INFECTION [None]
  - PROCEDURAL PAIN [None]
  - PURULENT DISCHARGE [None]
  - SKIN DISCOLOURATION [None]
  - WEIGHT DECREASED [None]
